FAERS Safety Report 6423086-1 (Version None)
Quarter: 2009Q4

REPORT INFORMATION
  Report Type: 
  Country: None (occurrence: None)
  Receive Date: 20091102
  Receipt Date: 20091021
  Transmission Date: 20100525
  Serious: Yes (Hospitalization)
  Sender: FDA-Public Use
  Company Number: MX-PFIZER INC-2006143248

PATIENT
  Age: 62 Year
  Sex: Female
  Weight: 39 kg

DRUGS (5)
  1. SUNITINIB MALATE [Suspect]
     Indication: RENAL CANCER
     Dosage: 50 MG, 1X/DAY
     Route: 048
     Dates: start: 20060818
  2. SUNITINIB MALATE [Suspect]
     Dosage: 50 MG, 1X/DAY
     Route: 048
     Dates: start: 20060929, end: 20061004
  3. SUNITINIB MALATE [Suspect]
     Dosage: 37.5 MG, 1X/DAY
     Route: 048
     Dates: start: 20061012, end: 20061026
  4. GLIBENCLAMIDE [Concomitant]
     Route: 048
     Dates: start: 20050801
  5. CHLORTHALIDONE [Concomitant]
     Route: 048
     Dates: start: 20030801

REACTIONS (1)
  - ENTEROCUTANEOUS FISTULA [None]
